FAERS Safety Report 7151236-0 (Version None)
Quarter: 2010Q4

REPORT INFORMATION
  Report Type: 
  Country: None (occurrence: None)
  Receive Date: 20101124
  Receipt Date: 20101118
  Transmission Date: 20110411
  Serious: Yes (Other)
  Sender: FDA-Public Use
  Company Number: DSA_44392_2010

PATIENT
  Sex: Female

DRUGS (4)
  1. VASOTEC [Suspect]
     Indication: PRODUCT USED FOR UNKNOWN INDICATION
     Dosage: (DF)
  2. PLENDIL [Suspect]
     Indication: PRODUCT USED FOR UNKNOWN INDICATION
     Dosage: (DF)
  3. TOPROL-XL [Suspect]
     Indication: PRODUCT USED FOR UNKNOWN INDICATION
     Dosage: (DF)
  4. HYDRALAZINE HCL [Concomitant]

REACTIONS (3)
  - HEART RATE INCREASED [None]
  - MYOCARDIAL INFARCTION [None]
  - VENOUS INSUFFICIENCY [None]
